FAERS Safety Report 6050405-0 (Version None)
Quarter: 2009Q1

REPORT INFORMATION
  Report Type: 
  Country: None (occurrence: None)
  Receive Date: 20090126
  Receipt Date: 20090122
  Transmission Date: 20090719
  Serious: Yes (Disabling, Other)
  Sender: FDA-Public Use
  Company Number: US-ASTRAZENECA-2009UW01871

PATIENT
  Sex: Female

DRUGS (6)
  1. ARIMIDEX [Suspect]
     Indication: BREAST CANCER
     Route: 048
     Dates: start: 20060101
  2. ACIPHEX [Concomitant]
     Route: 048
  3. ZANTAC [Concomitant]
     Route: 048
  4. PREDNISONE [Concomitant]
     Route: 048
  5. CALCIUM [Concomitant]
     Route: 048
  6. MULTI-VITAMIN [Concomitant]
     Route: 048

REACTIONS (3)
  - BLINDNESS [None]
  - PAPILLOEDEMA [None]
  - TOXIC OPTIC NEUROPATHY [None]
